FAERS Safety Report 12060926 (Version 1)
Quarter: 2016Q1

REPORT INFORMATION
  Report Type: Spontaneous
  Country: TW (occurrence: TW)
  Receive Date: 20160210
  Receipt Date: 20160210
  Transmission Date: 20160526
  Serious: Yes (Hospitalization)
  Sender: FDA-Public Use
  Company Number: TW-BAYER-2016-021117

PATIENT
  Age: 37 Year
  Sex: Female

DRUGS (1)
  1. YAZ [Suspect]
     Active Substance: DROSPIRENONE\ETHINYL ESTRADIOL
     Indication: MENSTRUATION IRREGULAR
     Dosage: UNK
     Dates: start: 2014

REACTIONS (4)
  - Nausea [Recovering/Resolving]
  - Jaundice [Recovering/Resolving]
  - Vomiting [Recovering/Resolving]
  - Hepatitis acute [Recovering/Resolving]
